FAERS Safety Report 6931408-8 (Version None)
Quarter: 2010Q3

REPORT INFORMATION
  Report Type: 
  Country: None (occurrence: None)
  Receive Date: 20100816
  Receipt Date: 20100721
  Transmission Date: 20110219
  Serious: Yes (Other)
  Sender: FDA-Public Use
  Company Number: 20109128

PATIENT
  Sex: Male

DRUGS (2)
  1. LIORESAL [Suspect]
     Indication: MUSCLE SPASTICITY
     Dosage: DAILY, INTRATHECAL
     Route: 037
  2. DILAUDID [Concomitant]

REACTIONS (9)
  - ARTHRALGIA [None]
  - GASTROINTESTINAL PAIN [None]
  - GRANULOMA [None]
  - HYPOAESTHESIA [None]
  - INFLAMMATION [None]
  - MASS [None]
  - MEDICAL DEVICE COMPLICATION [None]
  - MOBILITY DECREASED [None]
  - NERVE COMPRESSION [None]
